FAERS Safety Report 5035814-0 (Version None)
Quarter: 2006Q2

REPORT INFORMATION
  Report Type: 
  Country: None (occurrence: None)
  Receive Date: 20060622
  Receipt Date: 20060608
  Transmission Date: 20061013
  Serious: No
  Sender: FDA-Public Use
  Company Number: 2006RR-02586

PATIENT
  Age: 22 Year
  Sex: Female

DRUGS (1)
  1. DOXYCYCLINE [Suspect]
     Indication: URINARY TRACT INFECTION
     Dosage: ORAL
     Route: 048

REACTIONS (2)
  - ADVERSE EVENT [None]
  - DRUG ERUPTION [None]
